FAERS Safety Report 20877475 (Version 4)
Quarter: 2025Q2

REPORT INFORMATION
  Report Type: Report from Study
  Country: US (occurrence: US)
  Receive Date: 20220526
  Receipt Date: 20250507
  Transmission Date: 20250716
  Serious: Yes (Disabling, Other)
  Sender: AMGEN
  Company Number: US-AMGEN-USASP2022084726

PATIENT
  Age: 72 Year
  Sex: Female

DRUGS (5)
  1. PROLIA [Suspect]
     Active Substance: DENOSUMAB
     Indication: Osteoporosis
     Dosage: 60 MILLIGRAM, Q6MO
     Route: 058
     Dates: start: 2016, end: 202409
  2. VITAMIN D [Concomitant]
     Active Substance: VITAMIN D NOS
     Route: 065
  3. CALCIUM [Concomitant]
     Active Substance: CALCIUM
     Route: 065
  4. COLLAGEN [Concomitant]
     Active Substance: COLLAGEN
     Route: 065
  5. CHONDROITIN [Concomitant]
     Active Substance: CHONDROITIN
     Route: 065

REACTIONS (26)
  - Neuropathy peripheral [Not Recovered/Not Resolved]
  - Renal failure [Unknown]
  - Therapy non-responder [Unknown]
  - Endodontic procedure [Unknown]
  - Hyperaesthesia teeth [Not Recovered/Not Resolved]
  - Weight increased [Unknown]
  - Thyroid neoplasm [Unknown]
  - Body height decreased [Unknown]
  - Dermal cyst [Unknown]
  - Psoriasis [Unknown]
  - Illness [Unknown]
  - Bone disorder [Not Recovered/Not Resolved]
  - Pain [Not Recovered/Not Resolved]
  - Back pain [Not Recovered/Not Resolved]
  - Arthralgia [Not Recovered/Not Resolved]
  - Eczema [Unknown]
  - Blood calcium decreased [Unknown]
  - Pain in extremity [Not Recovered/Not Resolved]
  - Temporomandibular pain and dysfunction syndrome [Unknown]
  - Fibromyalgia [Unknown]
  - Hypoparathyroidism [Unknown]
  - Nail disorder [Unknown]
  - Gastrooesophageal reflux disease [Unknown]
  - Constipation [Unknown]
  - Nodule [Unknown]
  - Fingerprint loss [Unknown]

NARRATIVE: CASE EVENT DATE: 20180101
